FAERS Safety Report 6962930 (Version 2)
Quarter: 2013Q1

REPORT INFORMATION
  Report Type: Spontaneous
  Country: DE (occurrence: None)
  Receive Date: 20090327
  Receipt Date: 20130111
  Transmission Date: 20140127
  Serious: Yes (Hospitalization)
  Sender: FDA-Public Use
  Company Number: 2008AP002418

PATIENT
  Age: 48 Year
  Sex: Male

DRUGS (2)
  1. CARBAMAZEPINE [Suspect]
  2. PHENOBARBITAL [Concomitant]

REACTIONS (3)
  - INTERSTITIAL LUNG DISEASE [None]
  - NEUTROPHILIA [None]
  - WHITE BLOOD CELL COUNT INCREASED [None]
